FAERS Safety Report 7774927-7 (Version None)
Quarter: 2011Q3

REPORT INFORMATION
  Report Type: 
  Country: None (occurrence: None)
  Receive Date: 20110921
  Receipt Date: 20110906
  Transmission Date: 20111222
  Serious: Yes (Death)
  Sender: FDA-Public Use
  Company Number: FK201101899

PATIENT
  Age: 66 Year
  Sex: Male

DRUGS (2)
  1. CARBOPLATIN [Suspect]
     Indication: NON-SMALL CELL LUNG CANCER
  2. ETOPOSIDE [Suspect]
     Indication: NON-SMALL CELL LUNG CANCER

REACTIONS (3)
  - INTERSTITIAL LUNG DISEASE [None]
  - CONDITION AGGRAVATED [None]
  - RESPIRATORY FAILURE [None]
